FAERS Safety Report 15872747 (Version 1)
Quarter: 2019Q1

REPORT INFORMATION
  Report Type: Other
  Country: US (occurrence: US)
  Receive Date: 20190126
  Receipt Date: 20190126
  Transmission Date: 20190417
  Serious: No
  Sender: FDA-Public Use
  Company Number: US-ACORDA-ACO_148379_2018

PATIENT
  Sex: Male

DRUGS (2)
  1. TECFIDERA [Concomitant]
     Active Substance: DIMETHYL FUMARATE
     Indication: PRODUCT USED FOR UNKNOWN INDICATION
     Dosage: UNK
     Route: 065
  2. AMPYRA [Suspect]
     Active Substance: DALFAMPRIDINE
     Indication: MULTIPLE SCLEROSIS
     Dosage: 10 MG, BID (ALSO REPORTED AS EVERY 12 HOURS)
     Route: 048

REACTIONS (5)
  - Night sweats [Unknown]
  - Abdominal discomfort [Unknown]
  - Hypoaesthesia [Recovering/Resolving]
  - Flushing [Unknown]
  - Limb discomfort [Recovering/Resolving]
